FAERS Safety Report 6952906-7 (Version None)
Quarter: 2010Q3

REPORT INFORMATION
  Report Type: 
  Country: None (occurrence: None)
  Receive Date: 20100829
  Receipt Date: 20100521
  Transmission Date: 20110219
  Serious: No
  Sender: FDA-Public Use
  Company Number: US-ABBOTT-10P-163-0646487-00

PATIENT
  Sex: Male

DRUGS (9)
  1. NIASPAN [Suspect]
     Indication: PRODUCT USED FOR UNKNOWN INDICATION
     Dates: start: 20080101
  2. COLESTIPOL HYDROCHLORIDE [Concomitant]
     Indication: PRODUCT USED FOR UNKNOWN INDICATION
  3. LOVAZA [Concomitant]
     Indication: PRODUCT USED FOR UNKNOWN INDICATION
  4. PLAVIX [Concomitant]
     Indication: PRODUCT USED FOR UNKNOWN INDICATION
  5. ASPIRIN [Concomitant]
     Indication: PRODUCT USED FOR UNKNOWN INDICATION
  6. RANEXA [Concomitant]
     Indication: PRODUCT USED FOR UNKNOWN INDICATION
  7. SIMVASTATIN [Concomitant]
     Indication: PRODUCT USED FOR UNKNOWN INDICATION
  8. ZETIA [Concomitant]
     Indication: PRODUCT USED FOR UNKNOWN INDICATION
  9. AMLODIPINE BESYLATE AND BENAZEPRIL HCL [Concomitant]
     Indication: PRODUCT USED FOR UNKNOWN INDICATION

REACTIONS (3)
  - FEELING HOT [None]
  - HYPERHIDROSIS [None]
  - SKIN BURNING SENSATION [None]
